FAERS Safety Report 5291012-7 (Version None)
Quarter: 2007Q2

REPORT INFORMATION
  Report Type: 
  Country: None (occurrence: None)
  Receive Date: 20070409
  Receipt Date: 20070326
  Transmission Date: 20071010
  Serious: Yes (Life-Threatening, Hospitalization, Other)
  Sender: FDA-Public Use
  Company Number: US-ELI_LILLY_AND_COMPANY-US200703000641

PATIENT
  Age: 43 Year
  Sex: Male
  Weight: 99.773 kg

DRUGS (5)
  1. CYMBALTA [Suspect]
     Indication: DEPRESSION
     Dosage: 60 MG, UNKNOWN
     Route: 048
     Dates: start: 20061201
  2. INSULIN [Concomitant]
     Indication: DIABETES MELLITUS INSULIN-DEPENDENT
  3. XANAX [Concomitant]
  4. COCAINE [Concomitant]
  5. ALCOHOL [Concomitant]

REACTIONS (8)
  - COUGH [None]
  - DYSPNOEA [None]
  - HYPOXIA [None]
  - INFECTION [None]
  - LARYNGEAL OEDEMA [None]
  - RESPIRATORY DISTRESS [None]
  - VOCAL CORD PARALYSIS [None]
  - WHITE BLOOD CELL COUNT INCREASED [None]
